FAERS Safety Report 24694530 (Version 1)
Quarter: 2024Q4

REPORT INFORMATION
  Report Type: Spontaneous
  Country: FR (occurrence: FR)
  Receive Date: 20241204
  Receipt Date: 20241204
  Transmission Date: 20250115
  Serious: Yes (Other)
  Sender: JOHNSON AND JOHNSON
  Company Number: FR-JNJFOC-20241135009

PATIENT
  Age: 58 Year
  Sex: Female
  Weight: 62 kg

DRUGS (3)
  1. TECVAYLI [Suspect]
     Active Substance: TECLISTAMAB-CQYV
     Indication: Plasma cell myeloma
  2. TECVAYLI [Suspect]
     Active Substance: TECLISTAMAB-CQYV
     Dates: start: 2022
  3. TECVAYLI [Suspect]
     Active Substance: TECLISTAMAB-CQYV
     Dates: start: 2022

REACTIONS (8)
  - Altered state of consciousness [Unknown]
  - Akinesia [Unknown]
  - Bradykinesia [Unknown]
  - Dysgraphia [Unknown]
  - Hypotonia [Unknown]
  - Apathy [Unknown]
  - Confusional state [Unknown]
  - Off label use [Unknown]
